FAERS Safety Report 19232318 (Version 1)
Quarter: 2021Q2

REPORT INFORMATION
  Report Type: Spontaneous
  Country: US (occurrence: US)
  Receive Date: 20210507
  Receipt Date: 20210507
  Transmission Date: 20210717
  Serious: Yes (Other)
  Sender: FDA-Public Use
  Company Number: US-JNJFOC-20210456004

PATIENT
  Age: 6 Month
  Sex: Female

DRUGS (4)
  1. SILDENAFIL. [Suspect]
     Active Substance: SILDENAFIL
     Indication: ALVEOLAR CAPILLARY DYSPLASIA
     Route: 065
  2. NITRIC OXIDE. [Concomitant]
     Active Substance: NITRIC OXIDE
  3. VELETRI [Suspect]
     Active Substance: EPOPROSTENOL
     Indication: ALVEOLAR CAPILLARY DYSPLASIA
     Route: 065
  4. TRACLEER [Suspect]
     Active Substance: BOSENTAN
     Indication: ALVEOLAR CAPILLARY DYSPLASIA
     Route: 048

REACTIONS (6)
  - Product use issue [Unknown]
  - Laryngeal stenosis [Unknown]
  - Respiratory failure [Unknown]
  - Off label use [Unknown]
  - Cardio-respiratory arrest [Unknown]
  - Product use in unapproved indication [None]
